FAERS Safety Report 7516884-4 (Version None)
Quarter: 2011Q2

REPORT INFORMATION
  Report Type: 
  Country: None (occurrence: None)
  Receive Date: 20110601
  Receipt Date: 20110520
  Transmission Date: 20111010
  Serious: Yes (Hospitalization)
  Sender: FDA-Public Use
  Company Number: US-SHIRE-SPV1-2011-00783

PATIENT
  Sex: Female
  Weight: 23.583 kg

DRUGS (6)
  1. VYVANSE [Suspect]
     Indication: OPPOSITIONAL DEFIANT DISORDER
     Dosage: 20 MG, 1X/DAY:QD
     Route: 048
     Dates: start: 20091105, end: 20100204
  2. INTUNIV [Suspect]
     Indication: ATTENTION DEFICIT/HYPERACTIVITY DISORDER
     Dosage: 2 MG, 1X/DAY:QD
     Route: 048
     Dates: start: 20110421, end: 20110428
  3. INTUNIV [Suspect]
     Indication: OPPOSITIONAL DEFIANT DISORDER
     Dosage: 3MG, 1X/DAY:QD
     Route: 048
     Dates: start: 20110430, end: 20110503
  4. VYVANSE [Suspect]
     Indication: ATTENTION DEFICIT/HYPERACTIVITY DISORDER
     Dosage: 30 MG, 1X/DAY:QD
     Route: 048
     Dates: start: 20100205, end: 20110503
  5. CLONIDINE [Concomitant]
     Dosage: 0.1 MG, 1X/DAY:QD
     Dates: start: 20091003, end: 20091201
  6. CLONIDINE [Concomitant]
     Dosage: 0.1 MG, 1X/DAY:QD
     Dates: start: 20100501, end: 20110406

REACTIONS (3)
  - MYOCARDIAL INFARCTION [None]
  - CARDIAC ARREST [None]
  - CONVULSION [None]
